FAERS Safety Report 16148097 (Version 1)
Quarter: 2019Q2

REPORT INFORMATION
  Report Type: Spontaneous
  Country: US (occurrence: US)
  Receive Date: 20190402
  Receipt Date: 20190402
  Transmission Date: 20190711
  Serious: No
  Sender: FDA-Public Use
  Company Number: US-MYLANLABS-2019M1022928

PATIENT
  Sex: Female
  Weight: 44 kg

DRUGS (1)
  1. XULANE [Suspect]
     Active Substance: ETHINYL ESTRADIOL\NORELGESTROMIN
     Indication: CONTRACEPTION
     Dosage: 1 UNK
     Route: 062
     Dates: start: 20190210

REACTIONS (9)
  - Breast pain [Unknown]
  - Depression [Unknown]
  - Dysmenorrhoea [Unknown]
  - Anxiety [Unknown]
  - Headache [Unknown]
  - Product dose omission [Unknown]
  - Inappropriate schedule of product administration [Unknown]
  - Oligomenorrhoea [Unknown]
  - Menorrhagia [Unknown]
